FAERS Safety Report 10678658 (Version 1)
Quarter: 2014Q4

REPORT INFORMATION
  Report Type: Spontaneous
  Country: CH (occurrence: CH)
  Receive Date: 20141229
  Receipt Date: 20141229
  Transmission Date: 20150529
  Serious: Yes (Other)
  Sender: FDA-Public Use
  Company Number: CH-JNJFOC-20141217528

PATIENT
  Age: 22 Year
  Sex: Female

DRUGS (9)
  1. FORTECORTIN (DEXAMETHASONE) [Suspect]
     Active Substance: DEXAMETHASONE
     Indication: ABDOMINAL PAIN
     Route: 065
     Dates: start: 20141004, end: 20141007
  2. VOLTAREN [Suspect]
     Active Substance: DICLOFENAC SODIUM
     Indication: ABDOMINAL PAIN
     Route: 048
     Dates: start: 20141004, end: 20141007
  3. TRAMAL [Suspect]
     Active Substance: TRAMADOL
     Indication: ABDOMINAL PAIN
     Route: 048
     Dates: start: 20141004, end: 20141007
  4. ZOELY [Suspect]
     Active Substance: ESTRADIOL\NOMEGESTROL ACETATE
     Indication: CONTRACEPTION
     Route: 048
     Dates: start: 2014, end: 201409
  5. MOTILIUM [Suspect]
     Active Substance: DOMPERIDONE
     Indication: ABDOMINAL PAIN
     Route: 048
     Dates: start: 20141004, end: 20141007
  6. BUSCOPAN [Suspect]
     Active Substance: BUTYLSCOPOLAMINE BROMIDE
     Indication: PRODUCT USED FOR UNKNOWN INDICATION
     Route: 048
     Dates: start: 20141004, end: 20141007
  7. MORPHINE [Suspect]
     Active Substance: MORPHINE
     Indication: ABDOMINAL PAIN
     Route: 065
     Dates: start: 20141004, end: 20141007
  8. PETHIDINE [Suspect]
     Active Substance: MEPERIDINE
     Indication: ABDOMINAL PAIN
     Route: 065
     Dates: start: 20141004, end: 20141020
  9. NOVALGIN [Suspect]
     Active Substance: METAMIZOLE SODIUM
     Indication: ABDOMINAL PAIN
     Route: 048
     Dates: start: 20140928, end: 20141007

REACTIONS (1)
  - Exposure during pregnancy [Recovered/Resolved]
